FAERS Safety Report 8000622-5 (Version None)
Quarter: 2011Q4

REPORT INFORMATION
  Report Type: 
  Country: None (occurrence: None)
  Receive Date: 20111222
  Receipt Date: 20111215
  Transmission Date: 20120403
  Serious: Yes (Other)
  Sender: FDA-Public Use
  Company Number: AT-JNJFOC-20111204102

PATIENT

DRUGS (38)
  1. DOXORUBICIN HCL [Suspect]
     Route: 042
  2. DOXORUBICIN HCL [Suspect]
     Route: 042
  3. VINCRISTINE [Suspect]
     Route: 065
  4. PREDNISONE [Suspect]
     Indication: MANTLE CELL LYMPHOMA
     Route: 065
  5. DOXORUBICIN HCL [Suspect]
     Route: 042
  6. DOXORUBICIN HCL [Suspect]
     Route: 042
  7. RITUXIMAB [Suspect]
     Route: 065
  8. RITUXIMAB [Suspect]
     Route: 065
  9. RITUXIMAB [Suspect]
     Route: 065
  10. CYCLOPHOSPHAMIDE [Suspect]
     Indication: MANTLE CELL LYMPHOMA
     Route: 065
  11. CYCLOPHOSPHAMIDE [Suspect]
     Route: 065
  12. VINCRISTINE [Suspect]
     Indication: MANTLE CELL LYMPHOMA
     Route: 065
  13. PREDNISONE [Suspect]
     Route: 065
  14. PREDNISONE [Suspect]
     Route: 065
  15. RITUXIMAB [Suspect]
     Route: 065
  16. RITUXIMAB [Suspect]
     Route: 065
  17. VINCRISTINE [Suspect]
     Route: 065
  18. VINCRISTINE [Suspect]
     Route: 065
  19. VINCRISTINE [Suspect]
     Route: 065
  20. DOXORUBICIN HCL [Suspect]
     Route: 065
  21. CYCLOPHOSPHAMIDE [Suspect]
     Route: 065
  22. PREDNISONE [Suspect]
     Route: 065
  23. DOXORUBICIN HCL [Suspect]
     Route: 065
  24. DOXORUBICIN HCL [Suspect]
     Route: 065
  25. DALTEPARIN SODIUM [Concomitant]
     Indication: THROMBOSIS PROPHYLAXIS
     Route: 058
  26. DOXORUBICIN HCL [Suspect]
     Route: 042
  27. CYCLOPHOSPHAMIDE [Suspect]
     Route: 065
  28. VINCRISTINE [Suspect]
     Route: 065
  29. CYCLOPHOSPHAMIDE [Suspect]
     Route: 065
  30. PREDNISONE [Suspect]
     Route: 065
  31. DOXORUBICIN HCL [Suspect]
     Route: 065
  32. DOXORUBICIN HCL [Suspect]
     Indication: MANTLE CELL LYMPHOMA
     Route: 042
  33. RITUXIMAB [Suspect]
     Indication: MANTLE CELL LYMPHOMA
     Route: 065
  34. CYCLOPHOSPHAMIDE [Suspect]
     Route: 065
  35. PREDNISONE [Suspect]
     Route: 065
  36. THALIDOMIDE [Suspect]
     Indication: MANTLE CELL LYMPHOMA
     Route: 065
  37. DOXORUBICIN HCL [Suspect]
     Route: 065
  38. DOXORUBICIN HCL [Suspect]
     Route: 065

REACTIONS (2)
  - PULMONARY EMBOLISM [None]
  - ATRIAL FIBRILLATION [None]
